FAERS Safety Report 18446674 (Version 1)
Quarter: 2020Q4

REPORT INFORMATION
  Report Type: Spontaneous
  Country: US (occurrence: US)
  Receive Date: 20201030
  Receipt Date: 20201030
  Transmission Date: 20210114
  Serious: Yes (Death, Hospitalization, Other)
  Sender: FDA-Public Use
  Company Number: US-PURDUE-USA-2020-0171688

PATIENT
  Sex: Male

DRUGS (4)
  1. OXYCODONE HCL CR TABLETS (SIMILAR TO NDA 22-272) [Suspect]
     Active Substance: OXYCODONE HYDROCHLORIDE
     Indication: BACK INJURY
     Dosage: UNK
     Route: 048
  2. BUPRENORPHINE TRANSDERMAL PATCH (SIMILAR TO NDA 21-306) [Suspect]
     Active Substance: BUPRENORPHINE
     Indication: BACK INJURY
     Dosage: UNK
     Route: 062
  3. OXYCODONE/ ACETAMINOPHEN TABLETS [Suspect]
     Active Substance: ACETAMINOPHEN\OXYCODONE HYDROCHLORIDE
     Indication: BACK INJURY
     Dosage: UNK
     Route: 048
  4. OXYCODONE HCL TABLETS (RHODES 91-490) [Suspect]
     Active Substance: OXYCODONE HYDROCHLORIDE
     Indication: BACK INJURY
     Dosage: UNK
     Route: 048

REACTIONS (19)
  - Myocardial infarction [Unknown]
  - Overdose [Unknown]
  - Dependence [Unknown]
  - Drug abuse [Unknown]
  - Chills [Unknown]
  - Agitation [Unknown]
  - Insomnia [Unknown]
  - Anal incontinence [Unknown]
  - Weight decreased [Unknown]
  - Depression [Unknown]
  - Syncope [Unknown]
  - Fall [Unknown]
  - Mood altered [Unknown]
  - Death [Fatal]
  - Hip fracture [Unknown]
  - Withdrawal syndrome [Unknown]
  - Anger [Unknown]
  - Anxiety disorder [Unknown]
  - Nausea [Unknown]
